FAERS Safety Report 5032451-9 (Version None)
Quarter: 2006Q2

REPORT INFORMATION
  Report Type: 
  Country: None (occurrence: None)
  Receive Date: 20060622
  Receipt Date: 20060605
  Transmission Date: 20061013
  Serious: Yes (Death)
  Sender: FDA-Public Use
  Company Number: GB-JNJFOC-20060504113

PATIENT
  Sex: Male

DRUGS (3)
  1. DURAGESIC-50 [Suspect]
     Indication: PAIN
     Route: 062
  2. GABAPENTIN [Concomitant]
     Route: 065
  3. LAXATIVES [Concomitant]
     Route: 065

REACTIONS (3)
  - APPLICATION SITE EXCORIATION [None]
  - APPLICATION SITE PAIN [None]
  - DEATH [None]
